FAERS Safety Report 17993775 (Version 1)
Quarter: 2020Q3

REPORT INFORMATION
  Report Type: Spontaneous
  Country: US (occurrence: US)
  Receive Date: 20200707
  Receipt Date: 20200707
  Transmission Date: 20201103
  Serious: Yes (Death)
  Sender: FDA-Public Use
  Company Number: None

PATIENT
  Age: 46 Year
  Sex: Male

DRUGS (5)
  1. RIZATRIPTAN ODT 10MG [Concomitant]
     Active Substance: RIZATRIPTAN BENZOATE
  2. PROPRANOLOL 20MG [Concomitant]
     Active Substance: PROPRANOLOL HYDROCHLORIDE
  3. ONDANSTERON 4MG [Concomitant]
  4. FUROSEMIDE 40MG [Concomitant]
     Active Substance: FUROSEMIDE
  5. AIMOVIG [Suspect]
     Active Substance: ERENUMAB-AOOE
     Indication: MIGRAINE
     Dosage: ?          OTHER FREQUENCY:ONCE MONTHLY;?
     Route: 058
     Dates: start: 20200127, end: 20200601

REACTIONS (1)
  - Death [None]
